FAERS Safety Report 5386668-4 (Version None)
Quarter: 2007Q3

REPORT INFORMATION
  Report Type: 
  Country: None (occurrence: None)
  Receive Date: 20070713
  Receipt Date: 20070706
  Transmission Date: 20080115
  Serious: Yes (Death, Hospitalization)
  Sender: FDA-Public Use
  Company Number: US-GENENTECH-244228

PATIENT
  Age: 75 Year
  Sex: Female

DRUGS (4)
  1. BEVACIZUMAB [Suspect]
     Indication: NON-SMALL CELL LUNG CANCER
     Dosage: 1082 MG, Q3W
     Route: 042
     Dates: start: 20061211
  2. CETUXIMAB [Suspect]
     Indication: NON-SMALL CELL LUNG CANCER
     Dosage: 475 MG, 1/WEEK
     Route: 042
     Dates: start: 20061211
  3. CARBOPLATIN [Suspect]
     Indication: NON-SMALL CELL LUNG CANCER
     Dosage: 687 MG, Q3W
     Route: 042
     Dates: start: 20061211
  4. PACLITAXEL [Suspect]
     Indication: NON-SMALL CELL LUNG CANCER
     Dosage: 333 MG, Q3W
     Route: 042
     Dates: start: 20061211

REACTIONS (2)
  - FATIGUE [None]
  - INFECTION [None]
